FAERS Safety Report 5962693-7 (Version None)
Quarter: 2008Q4

REPORT INFORMATION
  Report Type: 
  Country: None (occurrence: None)
  Receive Date: 20081124
  Receipt Date: 20081119
  Transmission Date: 20090506
  Serious: Yes (Other)
  Sender: FDA-Public Use
  Company Number: BR-JNJFOC-20081104927

PATIENT
  Age: 32 Year
  Sex: Female

DRUGS (4)
  1. HALDOL [Suspect]
     Indication: DEPRESSION
     Route: 065
  2. SERTRALINE [Concomitant]
     Indication: DEPRESSION
     Route: 065
  3. MELLARIL [Concomitant]
     Indication: DEPRESSION
     Dosage: HALF TABLET OF 50 MG
     Route: 065
  4. RIVOTRIL [Concomitant]
     Indication: DEPRESSION
     Route: 065

REACTIONS (5)
  - ARTHRALGIA [None]
  - DEPRESSED MOOD [None]
  - FACIAL PALSY [None]
  - HEADACHE [None]
  - MUSCLE RIGIDITY [None]
